FAERS Safety Report 23604342 (Version 2)
Quarter: 2024Q3

REPORT INFORMATION
  Report Type: Spontaneous
  Country: US (occurrence: US)
  Receive Date: 20240307
  Receipt Date: 20240711
  Transmission Date: 20241017
  Serious: Yes (Other)
  Sender: ALIMERA
  Company Number: US-ALIMERA SCIENCES INC.-US-A16013-24-000170

PATIENT
  Age: 61 Year
  Sex: Female

DRUGS (2)
  1. YUTIQ [Suspect]
     Active Substance: FLUOCINOLONE ACETONIDE
     Indication: Uveitis
     Dosage: 0.18 MICROGRAM, QD - LEFT EYE
     Route: 031
     Dates: start: 202311
  2. RETISERT [Concomitant]
     Active Substance: FLUOCINOLONE ACETONIDE
     Indication: Product used for unknown indication
     Dosage: UNKNOWN
     Route: 031

REACTIONS (3)
  - Vitreous haemorrhage [Unknown]
  - Vitrectomy [Recovered/Resolved]
  - Medical device removal [Unknown]

NARRATIVE: CASE EVENT DATE: 20231101
